FAERS Safety Report 15053175 (Version 3)
Quarter: 2019Q1

REPORT INFORMATION
  Report Type: Report from Study
  Country: US (occurrence: US)
  Receive Date: 20180622
  Receipt Date: 20190221
  Transmission Date: 20190417
  Serious: Yes (Hospitalization, Other)
  Sender: FDA-Public Use
  Company Number: US-ACTELION-A-NJ2018-174031

PATIENT
  Age: 45 Year
  Sex: Female

DRUGS (25)
  1. DICLOFENAC [Concomitant]
     Active Substance: DICLOFENAC
     Route: 061
  2. MAGNESIUM OXIDE. [Concomitant]
     Active Substance: MAGNESIUM OXIDE
  3. TRACLEER [Suspect]
     Active Substance: BOSENTAN
     Indication: PULMONARY ARTERIAL HYPERTENSION
     Dosage: 125 MG, BID
     Route: 048
     Dates: start: 20151110
  4. POTASSIUM CHLORIDE. [Concomitant]
     Active Substance: POTASSIUM CHLORIDE
  5. OMEPRAZOLE. [Concomitant]
     Active Substance: OMEPRAZOLE
  6. EMLA [Concomitant]
     Active Substance: LIDOCAINE\PRILOCAINE
     Route: 061
  7. MIRALAX [Concomitant]
     Active Substance: POLYETHYLENE GLYCOL 3350
  8. SILDENAFIL. [Concomitant]
     Active Substance: SILDENAFIL
  9. ALCLOMETASONE [Concomitant]
     Active Substance: ALCLOMETASONE
     Route: 061
  10. COUMADIN [Concomitant]
     Active Substance: WARFARIN SODIUM
  11. SIMETHICONE (DIMETHICONE) [Concomitant]
     Active Substance: DIMETHICONE
  12. FLONASE [Concomitant]
     Active Substance: FLUTICASONE PROPIONATE
  13. LIDOCAINE. [Concomitant]
     Active Substance: LIDOCAINE
     Route: 061
  14. HYDROQUINONE. [Concomitant]
     Active Substance: HYDROQUINONE
     Route: 061
  15. LEVALBUTEROL. [Concomitant]
     Active Substance: LEVALBUTEROL
     Route: 055
  16. FUROSEMIDE. [Concomitant]
     Active Substance: FUROSEMIDE
  17. PREDNISONE. [Concomitant]
     Active Substance: PREDNISONE
  18. DIGOXIN. [Concomitant]
     Active Substance: DIGOXIN
  19. TRETINOIN. [Concomitant]
     Active Substance: TRETINOIN
     Route: 061
  20. ZOLPIDEM [Concomitant]
     Active Substance: ZOLPIDEM\ZOLPIDEM TARTRATE
  21. ATORVASTATIN [Concomitant]
     Active Substance: ATORVASTATIN
  22. HYDROCORTISONE. [Concomitant]
     Active Substance: HYDROCORTISONE
     Route: 054
  23. CETIRIZINE [Concomitant]
     Active Substance: CETIRIZINE HYDROCHLORIDE
  24. METOLAZONE. [Concomitant]
     Active Substance: METOLAZONE
  25. COLACE [Concomitant]
     Active Substance: DOCUSATE SODIUM

REACTIONS (13)
  - Atrial fibrillation [Unknown]
  - Blood lactic acid increased [Recovering/Resolving]
  - Ischaemia [Recovering/Resolving]
  - Head injury [Unknown]
  - Dyspnoea [Unknown]
  - Anxiety [Unknown]
  - Skin laceration [Unknown]
  - Diarrhoea [Recovering/Resolving]
  - Palpitations [Unknown]
  - Abdominal pain [Recovering/Resolving]
  - Sepsis [Recovering/Resolving]
  - Colitis [Recovering/Resolving]
  - Fall [Unknown]

NARRATIVE: CASE EVENT DATE: 20180514
